FAERS Safety Report 8210948-8 (Version None)
Quarter: 2012Q1

REPORT INFORMATION
  Report Type: 
  Country: None (occurrence: None)
  Receive Date: 20120315
  Receipt Date: 20120203
  Transmission Date: 20120608
  Serious: Yes (Other)
  Sender: FDA-Public Use
  Company Number: FR-BAYER-2012-012013

PATIENT
  Age: 54 Year
  Sex: Female

DRUGS (8)
  1. ISENTRESS [Suspect]
     Indication: HIV INFECTION
     Dosage: UNK
     Route: 048
     Dates: start: 20110401, end: 20120115
  2. NORVIR [Concomitant]
     Indication: HIV INFECTION
     Dosage: UNK
     Route: 048
     Dates: start: 20110401, end: 20120115
  3. CIPROFLOXACIN [Suspect]
     Indication: URINARY TRACT INFECTION
     Dosage: UNK
     Dates: start: 20111201
  4. TERCIAN [Concomitant]
  5. IMOVANE [Concomitant]
  6. DARUNAVIR HYDRATE [Suspect]
     Indication: HIV INFECTION
     Dosage: UNK
     Route: 048
     Dates: start: 20110401, end: 20120115
  7. EFFEXOR [Concomitant]
  8. LITHIUM CARBONATE [Concomitant]

REACTIONS (1)
  - CYTOLYTIC HEPATITIS [None]
